FAERS Safety Report 24199460 (Version 1)
Quarter: 2024Q3

REPORT INFORMATION
  Report Type: Spontaneous
  Country: CO (occurrence: CO)
  Receive Date: 20240812
  Receipt Date: 20240812
  Transmission Date: 20241017
  Serious: Yes (Death, Hospitalization, Other)
  Sender: ASTELLAS
  Company Number: CO-ASTELLAS-2024US022647

PATIENT
  Sex: Male

DRUGS (1)
  1. PROGRAF [Suspect]
     Active Substance: TACROLIMUS
     Indication: Renal transplant
     Dosage: UNK UNK, ONCE DAILY
     Route: 048

REACTIONS (2)
  - Urinary retention [Fatal]
  - Gastric cancer [Fatal]

NARRATIVE: CASE EVENT DATE: 20240101
